FAERS Safety Report 5189941-8 (Version None)
Quarter: 2006Q4

REPORT INFORMATION
  Report Type: 
  Country: None (occurrence: None)
  Receive Date: 20061215
  Receipt Date: 20061204
  Transmission Date: 20070319
  Serious: Yes (Hospitalization)
  Sender: FDA-Public Use
  Company Number: 233435

PATIENT
  Age: 79 Year
  Sex: Male

DRUGS (4)
  1. MABTHERA (RITUXIMAB) CONC FOR SOLUTION FOR INFUSION [Suspect]
     Indication: DRUG USE FOR UNKNOWN INDICATION
     Dosage: 710 MG, SINGLE, INTRAVENOUS
     Route: 042
     Dates: start: 20061122, end: 20061122
  2. CARVEDILOL [Concomitant]
  3. TORASEMID (TORSEMIDE) [Concomitant]
  4. ATACAND [Concomitant]

REACTIONS (3)
  - ASCITES [None]
  - FLUID RETENTION [None]
  - OLIGURIA [None]
